FAERS Safety Report 16334460 (Version 1)
Quarter: 2019Q2

REPORT INFORMATION
  Report Type: Report from Study
  Country: MX (occurrence: MX)
  Receive Date: 20190520
  Receipt Date: 20190520
  Transmission Date: 20190711
  Serious: Yes (Other)
  Sender: FDA-Public Use
  Company Number: PHHY2019MX113911

PATIENT
  Sex: Female
  Weight: 65 kg

DRUGS (1)
  1. TEGRETOL [Suspect]
     Active Substance: CARBAMAZEPINE
     Indication: EPILEPSY
     Dosage: 1 DF (200 MG) , BID (35 YEARS AGO APPROXIMATELY)
     Route: 048

REACTIONS (4)
  - Drug interaction [Unknown]
  - Pain [Unknown]
  - Arthritis [Unknown]
  - Coma [Recovered/Resolved]
